FAERS Safety Report 12586071 (Version 1)
Quarter: 2016Q3

REPORT INFORMATION
  Report Type: Spontaneous
  Country: US (occurrence: None)
  Receive Date: 20160722
  Receipt Date: 20160722
  Transmission Date: 20161109
  Serious: No
  Sender: FDA-Public Use
  Company Number: None

PATIENT
  Age: 41 Year
  Sex: Female
  Weight: 69.4 kg

DRUGS (6)
  1. FLOVENT DISKUS [Concomitant]
     Active Substance: FLUTICASONE PROPIONATE
  2. PROAIR HFA [Concomitant]
     Active Substance: ALBUTEROL SULFATE
  3. COQ10 [Concomitant]
     Active Substance: UBIDECARENONE
  4. GLATOPA [Suspect]
     Active Substance: GLATIRAMER ACETATE
     Indication: MULTIPLE SCLEROSIS
     Dosage: 30 INJECTION(S)   GIVEN INTO/UNDER THE SKIN
     Dates: start: 20160501, end: 20160721
  5. COENZYME B-COMPLEX [Concomitant]
  6. VITAMIN D3 [Concomitant]
     Active Substance: CHOLECALCIFEROL

REACTIONS (6)
  - Urticaria [None]
  - Flushing [None]
  - Nausea [None]
  - Headache [None]
  - Throat tightness [None]
  - Dyspnoea [None]

NARRATIVE: CASE EVENT DATE: 20160609
